FAERS Safety Report 9778771 (Version 2)
Quarter: 2014Q1

REPORT INFORMATION
  Report Type: Spontaneous
  Country: US (occurrence: US)
  Receive Date: 20131223
  Receipt Date: 20140130
  Transmission Date: 20141002
  Serious: Yes (Other)
  Sender: FDA-Public Use
  Company Number: US-009507513-1312USA010042

PATIENT
  Sex: 0

DRUGS (1)
  1. ZETIA [Suspect]
     Indication: BLOOD CHOLESTEROL
     Dosage: UNK
     Route: 048
     Dates: start: 2013

REACTIONS (1)
  - Lung neoplasm malignant [Unknown]
